FAERS Safety Report 24214534 (Version 1)
Quarter: 2024Q3

REPORT INFORMATION
  Report Type: Spontaneous
  Country: KR (occurrence: KR)
  Receive Date: 20240815
  Receipt Date: 20240815
  Transmission Date: 20241016
  Serious: Yes (Death, Other)
  Sender: MERCK
  Company Number: KR-009507513-2408KOR004922

PATIENT
  Age: 41 Year
  Sex: Female
  Weight: 57 kg

DRUGS (14)
  1. PREVYMIS [Suspect]
     Active Substance: LETERMOVIR
     Indication: Antiviral prophylaxis
     Dosage: 240 MILLIGRAM, QD
     Route: 048
     Dates: start: 20210920, end: 20210921
  2. PREVYMIS [Suspect]
     Active Substance: LETERMOVIR
     Dosage: 240 MILLIGRAM, QD
     Route: 048
     Dates: start: 20211005, end: 20211122
  3. PREVYMIS [Suspect]
     Active Substance: LETERMOVIR
     Indication: Antiviral prophylaxis
     Dosage: 480 MG/ 24 ML
     Route: 042
     Dates: start: 20210922, end: 20210922
  4. PREVYMIS [Suspect]
     Active Substance: LETERMOVIR
     Dosage: 240 MG/ 12 ML
     Route: 042
     Dates: start: 20210923, end: 20211004
  5. ALLOPURINOL [Concomitant]
     Active Substance: ALLOPURINOL
     Indication: Prophylaxis
     Dosage: 100 MILLIGRAM, BID
     Route: 048
     Dates: start: 20211116
  6. SULFAMETHOXAZOLE\TRIMETHOPRIM [Concomitant]
     Active Substance: SULFAMETHOXAZOLE\TRIMETHOPRIM
     Indication: Infection prophylaxis
     Dosage: 400 MILLIGRAM, QD
     Route: 048
     Dates: start: 20211005
  7. SYNTHROID [Concomitant]
     Active Substance: LEVOTHYROXINE SODIUM
     Indication: Thyroid cancer
     Dosage: 150 MILLIGRAM, QD
     Route: 048
     Dates: start: 20210906
  8. PLUNAZOLE [Concomitant]
     Indication: Antifungal prophylaxis
     Dosage: 300 MILLIGRAM, QD (STRENGTH: 150 MG)
     Route: 048
     Dates: start: 20211206
  9. PLUNAZOLE [Concomitant]
     Dosage: 100 MILLIGRAM, QD (STRENGTH: 50 MG)
     Route: 048
     Dates: start: 20211206
  10. URSODIOL [Concomitant]
     Active Substance: URSODIOL
     Indication: Aspartate aminotransferase increased
     Dosage: 100 MILLIGRAM, TID
     Route: 048
     Dates: start: 20211012
  11. GODEX [ADENINE HYDROCHLORIDE;BIFENDATE;CARNITINE OROTATE;CYANOCOBALAMI [Concomitant]
     Indication: Aspartate aminotransferase increased
     Dosage: 1 CAPSULE, TID
     Route: 048
     Dates: start: 20211103
  12. VENITOL [Concomitant]
     Indication: Haemorrhoids
     Dosage: 1500 MILLIGRAM, BID
     Route: 048
     Dates: start: 20211202
  13. CODEINE PHOSPHATE [Concomitant]
     Active Substance: CODEINE PHOSPHATE
     Indication: Cough
     Dosage: 20 MILLIGRAM, QD
     Route: 048
     Dates: start: 20211130
  14. .ALPHA.-TOCOPHEROL ACETATE\ALLANTOIN\LIDOCAINE\PREDNISOLONE [Concomitant]
     Active Substance: .ALPHA.-TOCOPHEROL ACETATE\ALLANTOIN\LIDOCAINE\PREDNISOLONE
     Indication: Haemorrhoids
     Dosage: 2 GRAM, QD
     Dates: start: 20211202

REACTIONS (1)
  - Multiple organ dysfunction syndrome [Fatal]

NARRATIVE: CASE EVENT DATE: 20220227
